FAERS Safety Report 16834420 (Version 1)
Quarter: 2019Q3

REPORT INFORMATION
  Report Type: Spontaneous
  Country: GB (occurrence: GB)
  Receive Date: 20190920
  Receipt Date: 20190920
  Transmission Date: 20191005
  Serious: Yes (Other)
  Sender: FDA-Public Use
  Company Number: GB-ELI_LILLY_AND_COMPANY-GB201909004629

PATIENT
  Age: 64 Year
  Sex: Female
  Weight: 75 kg

DRUGS (24)
  1. HUMALOG MIX50/50 [Suspect]
     Active Substance: INSULIN LISPRO
     Indication: PRODUCT USED FOR UNKNOWN INDICATION
     Dosage: UNK UNK, UNKNOWN
     Route: 058
     Dates: start: 20190604, end: 20190620
  2. EPILIM [Concomitant]
     Active Substance: VALPROATE SODIUM
     Dosage: 2 DOSAGE FORM, DAILY
     Dates: start: 20190507
  3. BISOPROLOL [Concomitant]
     Active Substance: BISOPROLOL
     Dosage: 1 DOSAGE FORM, DAILY
     Dates: start: 20190507
  4. LANSOPRAZOLE. [Concomitant]
     Active Substance: LANSOPRAZOLE
     Dosage: 1 DOSAGE FORM, DAILY
     Dates: start: 20190312
  5. MEPTAZINOL [Concomitant]
     Active Substance: MEPTAZINOL HYDROCHLORIDE
     Dosage: 1 DOSAGE FORM, EVERY 4 HRS
     Dates: start: 20180925
  6. INSUMAN COMB [Concomitant]
     Active Substance: INSULIN HUMAN
     Dosage: UNK
     Dates: start: 20190312
  7. ACITRETIN. [Concomitant]
     Active Substance: ACITRETIN
     Dosage: TAKE ONE (10MG) / TWO (20MG) ON ALTERNATE DAYS
     Dates: start: 20180925
  8. MONOMIL XL [Concomitant]
     Active Substance: ISOSORBIDE MONONITRATE
     Dosage: 0.5 DOSAGE FORM, DAILY (EACH MORNING)
     Dates: start: 20190325
  9. ZINC OXIDE. [Concomitant]
     Active Substance: ZINC OXIDE
     Dosage: UNK
     Dates: start: 20180925
  10. DICLOFENAC DIETHYLAMINE [Concomitant]
     Active Substance: DICLOFENAC DIETHYLAMINE
     Dosage: 3 DOSAGE FORM, DAILY
     Dates: start: 20190507
  11. DIFFLAM [Concomitant]
     Active Substance: BENZYDAMINE HYDROCHLORIDE
     Dosage: 2 DOSAGE FORM, DAILY
     Dates: start: 20180925, end: 20190620
  12. GLYCERYL TRINITRATE [Concomitant]
     Active Substance: NITROGLYCERIN
     Dosage: UNK, PRN
     Dates: start: 20180925
  13. WHITE SOFT PARAFFIN [Concomitant]
     Active Substance: PARAFFIN
     Dosage: UNK
     Dates: start: 20180925
  14. DERMOL [BENZALKONIUM CHLORIDE;CHLORHEXIDINE H [Concomitant]
     Dosage: UNK
     Dates: start: 20190507
  15. ACETYLSALICYLIC ACID [Concomitant]
     Active Substance: ASPIRIN
     Dosage: 1 DOSAGE FORM, DAILY
     Dates: start: 20190507
  16. PARACETAMOL [Concomitant]
     Active Substance: ACETAMINOPHEN
     Dosage: TAKE 1 OR 2, 4 TIMES/DAY
     Dates: start: 20180925
  17. FLUTIFORM [Concomitant]
     Active Substance: FLUTICASONE PROPIONATE\FORMOTEROL FUMARATE
     Dosage: 4 DOSAGE FORM, DAILY
     Route: 055
     Dates: start: 20190507
  18. LEVOTHYROXINE. [Concomitant]
     Active Substance: LEVOTHYROXINE
     Dosage: 2 DOSAGE FORM, DAILY (EACH MORNING)
     Dates: start: 20190312
  19. DERMOVATE [Concomitant]
     Active Substance: CLOBETASOL
     Dosage: APPLY FOR 4 WEEKS USE SPARINGLY
     Dates: start: 20190809
  20. LACTULOSE. [Concomitant]
     Active Substance: LACTULOSE
     Dosage: 60 ML, DAILY
     Dates: start: 20190312
  21. ATORVASTATIN [Concomitant]
     Active Substance: ATORVASTATIN
     Dosage: 1 DOSAGE FORM, DAILY
     Dates: start: 20190507
  22. SALBUTAMOL [Concomitant]
     Active Substance: ALBUTEROL
     Dosage: 2 DOSAGE FORM, UNKNOWN
     Dates: start: 20190507
  23. FLUOXETINE [Concomitant]
     Active Substance: FLUOXETINE HYDROCHLORIDE
     Dosage: 1 DOSAGE FORM, DAILY
     Dates: start: 20190507
  24. EPADERM [Concomitant]
     Active Substance: MINERAL OIL\PETROLATUM\WAX, EMULSIFYING
     Dosage: USE ONCE TO TWICE A DAY ON WHOLE BODY AS DIRECT
     Dates: start: 20180925

REACTIONS (2)
  - Paraesthesia oral [Recovered/Resolved]
  - Dizziness [Unknown]
